FAERS Safety Report 14372791 (Version 1)
Quarter: 2018Q1

REPORT INFORMATION
  Report Type: Spontaneous
  Country: US (occurrence: US)
  Receive Date: 20180110
  Receipt Date: 20180110
  Transmission Date: 20180509
  Serious: Yes (Life-Threatening, Hospitalization, Other)
  Sender: FDA-Public Use
  Company Number: US-MYLANLABS-2017M1083760

PATIENT
  Age: 79 Year
  Sex: Female

DRUGS (2)
  1. ROPIVACAINE [Suspect]
     Active Substance: ROPIVACAINE
     Indication: ANALGESIC THERAPY
     Dosage: 0.2% ROPIVACAINE AT A BASAL RATE OF 4CC/H, BOLUS 3CC, LOCKOUT INTERVAL 30 MINUTES
     Route: 050
  2. ROPIVACAINE [Suspect]
     Active Substance: ROPIVACAINE
     Indication: LOCAL ANAESTHESIA
     Dosage: BOLUSED WITH 10CC OF 0.5% ROPIVACAINE THROUGH HER PERIPHERAL NERVE CATHETER
     Route: 042

REACTIONS (4)
  - Respiratory failure [Recovered/Resolved]
  - Respiratory distress [Recovered/Resolved]
  - Aphonia [Recovered/Resolved]
  - Stridor [Recovered/Resolved]
